FAERS Safety Report 17493566 (Version 1)
Quarter: 2020Q1

REPORT INFORMATION
  Report Type: Spontaneous
  Country: CO (occurrence: CO)
  Receive Date: 20200303
  Receipt Date: 20200303
  Transmission Date: 20200409
  Serious: Yes (Other)
  Sender: FDA-Public Use
  Company Number: CO-FRESENIUS KABI-FK202002113

PATIENT
  Age: 74 Year
  Sex: Male
  Weight: 65 kg

DRUGS (2)
  1. PARACETAMOL [Concomitant]
     Active Substance: ACETAMINOPHEN
     Indication: PROCEDURAL PAIN
     Dosage: UNKNOWN
     Route: 048
  2. FENTANYL (MANUFACTURER UNKNOWN) [Suspect]
     Active Substance: FENTANYL
     Indication: PROCEDURAL PAIN
     Dosage: 20UG, 5-MINUTE BLOCK INTERVAL, MAXIMUM DOSE OF 200 UG IN 4 HOURS
     Route: 050

REACTIONS (4)
  - Atelectasis [Unknown]
  - Hallucination [Unknown]
  - Vomiting [Unknown]
  - Nausea [Unknown]
